FAERS Safety Report 12119193 (Version 1)
Quarter: 2016Q1

REPORT INFORMATION
  Report Type: Spontaneous
  Country: US (occurrence: None)
  Receive Date: 20160225
  Receipt Date: 20160225
  Transmission Date: 20160526
  Serious: No
  Sender: FDA-Public Use
  Company Number: None

PATIENT
  Age: 63 Year
  Sex: Male

DRUGS (1)
  1. INLYTA [Suspect]
     Active Substance: AXITINIB
     Indication: NEOPLASM MALIGNANT
     Route: 048
     Dates: start: 20160122

REACTIONS (7)
  - Weight decreased [None]
  - Decreased appetite [None]
  - Fatigue [None]
  - Dry skin [None]
  - Nasal dryness [None]
  - Dysphonia [None]
  - Rhinorrhoea [None]

NARRATIVE: CASE EVENT DATE: 20160212
